FAERS Safety Report 8287486-X (Version None)
Quarter: 2012Q2

REPORT INFORMATION
  Report Type: 
  Country: None (occurrence: None)
  Receive Date: 20120411
  Receipt Date: 20120330
  Transmission Date: 20120825
  Serious: Yes (Hospitalization)
  Sender: FDA-Public Use
  Company Number: IMP_05831_2012

PATIENT
  Age: 62 Year
  Sex: Female

DRUGS (2)
  1. GLICLAZIDE [Concomitant]
  2. METFORMIN HCL [Suspect]
     Indication: TYPE 2 DIABETES MELLITUS
     Dosage: (500 MG QD)

REACTIONS (3)
  - POSTOPERATIVE ILEUS [None]
  - GASTROINTESTINAL STOMA COMPLICATION [None]
  - INTESTINAL OBSTRUCTION [None]
